FAERS Safety Report 7717416-8 (Version None)
Quarter: 2011Q3

REPORT INFORMATION
  Report Type: 
  Country: None (occurrence: None)
  Receive Date: 20110830
  Receipt Date: 20100830
  Transmission Date: 20111222
  Serious: No
  Sender: FDA-Public Use
  Company Number: US-MYLANLABS-2010S1016215

PATIENT
  Age: 67 Year
  Sex: Female

DRUGS (4)
  1. EVISTA [Concomitant]
     Route: 048
  2. TEMAZEPAM [Suspect]
     Indication: INSOMNIA
     Route: 048
     Dates: start: 20100101, end: 20100828
  3. PULMICORT [Concomitant]
     Route: 055
  4. CALCIUM CARBONATE [Concomitant]
     Route: 048

REACTIONS (4)
  - DRUG INEFFECTIVE [None]
  - HEART RATE INCREASED [None]
  - HOT FLUSH [None]
  - INSOMNIA [None]
